FAERS Safety Report 8503757-3 (Version None)
Quarter: 2012Q3

REPORT INFORMATION
  Report Type: 
  Country: None (occurrence: None)
  Receive Date: 20120711
  Receipt Date: 20120705
  Transmission Date: 20120928
  Serious: Yes (Other)
  Sender: FDA-Public Use
  Company Number: FR-ABBOTT-12P-056-0939005-00

PATIENT
  Sex: Male
  Weight: 88 kg

DRUGS (11)
  1. COPEGUS [Suspect]
     Indication: HEPATITIS C
     Route: 048
     Dates: start: 20120212, end: 20120425
  2. TELAPREVIR [Suspect]
     Indication: HEPATITIS C
     Route: 048
     Dates: start: 20120212, end: 20120425
  3. ISENTRESS [Suspect]
     Indication: HIV INFECTION
     Route: 048
     Dates: start: 20120103, end: 20120423
  4. VITAMIN D [Concomitant]
  5. ENALAPRIL MALEATE AND HYDROCHLOROTHIAZIDE [Concomitant]
  6. LEVOTHYROXINE SODIUM [Concomitant]
  7. NORVIR [Suspect]
     Indication: HIV INFECTION
     Route: 048
     Dates: start: 20120103, end: 20120423
  8. NEXIUM [Concomitant]
  9. REYATAZ [Suspect]
     Indication: HIV INFECTION
     Route: 048
     Dates: start: 20120103, end: 20120423
  10. PEGASYS [Suspect]
     Indication: HEPATITIS C
     Route: 058
     Dates: start: 20120212, end: 20120425
  11. GABAPENTIN [Concomitant]

REACTIONS (10)
  - NAUSEA [None]
  - HEPATITIS C [None]
  - ANAEMIA [None]
  - PROCTALGIA [None]
  - VERTIGO [None]
  - FATIGUE [None]
  - IRRITABILITY [None]
  - DECREASED APPETITE [None]
  - PRURIGO [None]
  - DYSPNOEA EXERTIONAL [None]
